FAERS Safety Report 5658028-X (Version None)
Quarter: 2008Q1

REPORT INFORMATION
  Report Type: 
  Country: None (occurrence: None)
  Receive Date: 20080310
  Receipt Date: 20070209
  Transmission Date: 20080703
  Serious: No
  Sender: FDA-Public Use
  Company Number: US-BAYER-200614928BCC

PATIENT
  Age: 60 Year
  Sex: Female
  Weight: 51 kg

DRUGS (5)
  1. ALEVE [Suspect]
     Indication: ARTHRALGIA
     Dosage: TOTAL DAILY DOSE: 440 MG  UNIT DOSE: 220 MG
     Route: 048
     Dates: start: 20061201, end: 20061205
  2. FEMARA [Concomitant]
  3. ADVICOR [Concomitant]
  4. ACTONEL [Concomitant]
  5. DIOVAN [Concomitant]

REACTIONS (2)
  - NASAL DISCOMFORT [None]
  - SWOLLEN TONGUE [None]
